FAERS Safety Report 8789715 (Version 2)
Quarter: 2012Q4

REPORT INFORMATION
  Report Type: Spontaneous
  Country: None (occurrence: None)
  Receive Date: 20120906
  Receipt Date: 20121005
  Transmission Date: 20130627
  Serious: Yes (Hospitalization, Other)
  Sender: FDA-Public Use
  Company Number: AUR-APL-2012-03752

PATIENT
  Age: 28 Year
  Sex: Female

DRUGS (4)
  1. RISPERIDONE [Suspect]
     Indication: PARANOID SCHIZOPHRENIA
     Route: 048
     Dates: start: 201206
  2. RISPERIDONE [Suspect]
     Indication: PARANOID SCHIZOPHRENIA
  3. RISPERDAL CONSTA [Suspect]
     Indication: DRUG USE FOR UNKNOWN INDICATION
     Dosage: 3.5714 MG (50 mg,1 in 2 wk),Intramuscular
     Dates: start: 201205
  4. RISPERDAL CONSTA [Suspect]
     Indication: DRUG USE FOR UNKNOWN INDICATION
     Dosage: 2.6786 mg (37.5 mg,1 in 2 wk), Intramuscular
     Dates: end: 201205

REACTIONS (9)
  - Aggression [None]
  - Irritability [None]
  - Impaired self-care [None]
  - Social avoidant behaviour [None]
  - Speech disorder [None]
  - Tardive dyskinesia [None]
  - Akathisia [None]
  - Mutism [None]
  - Abnormal behaviour [None]
